FAERS Safety Report 17055317 (Version 1)
Quarter: 2019Q4

REPORT INFORMATION
  Report Type: Spontaneous
  Country: GB (occurrence: GB)
  Receive Date: 20191120
  Receipt Date: 20191120
  Transmission Date: 20200122
  Serious: Yes (Other)
  Sender: FDA-Public Use
  Company Number: GB-BAUSCH-BL-2019-061821

PATIENT
  Sex: Female

DRUGS (3)
  1. METFORMIN [Suspect]
     Active Substance: METFORMIN HYDROCHLORIDE
     Indication: DIABETES MELLITUS
     Route: 065
  2. PIOGLITAZONE. [Suspect]
     Active Substance: PIOGLITAZONE
     Indication: DIABETES MELLITUS
     Route: 065
  3. STARLIX [Suspect]
     Active Substance: NATEGLINIDE
     Indication: DIABETES MELLITUS
     Route: 065

REACTIONS (1)
  - Glycosylated haemoglobin increased [Unknown]
